FAERS Safety Report 19403618 (Version 1)
Quarter: 2021Q2

REPORT INFORMATION
  Report Type: Spontaneous
  Country: US (occurrence: US)
  Receive Date: 20210610
  Receipt Date: 20210610
  Transmission Date: 20210717
  Serious: Yes (Other)
  Sender: FDA-Public Use
  Company Number: None

PATIENT
  Age: 26 Year
  Sex: Female
  Weight: 90 kg

DRUGS (4)
  1. COPPERTONE PURE AND SIMPLE SUNSCREEN SPF 50 [Suspect]
     Active Substance: ZINC OXIDE
     Indication: SUNBURN
     Dosage: ?          QUANTITY:2 APPLICATIONS;OTHER FREQUENCY:EVERY 1?2 HOURS;?
     Route: 061
     Dates: start: 20210605, end: 20210605
  2. LEXAPRO [Concomitant]
     Active Substance: ESCITALOPRAM OXALATE
  3. VITAMIN D [Concomitant]
     Active Substance: VITAMIN D NOS
  4. ADDERALL XR [Concomitant]
     Active Substance: AMPHETAMINE ASPARTATE\AMPHETAMINE SULFATE\DEXTROAMPHETAMINE SACCHARATE\DEXTROAMPHETAMINE SULFATE

REACTIONS (2)
  - Sunburn [None]
  - Drug ineffective [None]

NARRATIVE: CASE EVENT DATE: 20210605
